FAERS Safety Report 9409130 (Version 1)
Quarter: 2013Q3

REPORT INFORMATION
  Report Type: Spontaneous
  Country: US (occurrence: US)
  Receive Date: 20130719
  Receipt Date: 20130719
  Transmission Date: 20140515
  Serious: Yes (Death, Hospitalization)
  Sender: FDA-Public Use
  Company Number: US-JNJFOC-NSADSS2003008448

PATIENT
  Age: 61 Year
  Sex: Female

DRUGS (6)
  1. REMICADE [Suspect]
     Indication: POLYMYOSITIS
     Dosage: RECEIVED TOTAL OF THREE INFUSIONS
     Route: 042
     Dates: start: 20021107
  2. REMICADE [Suspect]
     Indication: POLYMYOSITIS
     Dosage: APPROXIMATE NUMBER OF INFUSIONS WERE REPORTED AS 7
     Route: 042
     Dates: end: 200212
  3. REMICADE [Suspect]
     Indication: POLYMYOSITIS
     Route: 042
     Dates: start: 200203
  4. PREDNISONE [Concomitant]
     Indication: POLYMYOSITIS
     Dosage: TOTAL DAILY DOSE: VARIABLE
     Route: 065
     Dates: start: 2001, end: 2003
  5. PREDNISONE [Concomitant]
     Indication: POLYMYOSITIS
     Route: 065
  6. METHOTREXATE [Concomitant]
     Indication: POLYMYOSITIS
     Route: 065
     Dates: start: 2001, end: 2002

REACTIONS (6)
  - Pulmonary tuberculosis [Fatal]
  - Myocardial infarction [Fatal]
  - Gastrointestinal haemorrhage [Fatal]
  - Cerebrovascular accident [Fatal]
  - Pulmonary oedema [Unknown]
  - Off label use [Unknown]
